FAERS Safety Report 16476322 (Version 2)
Quarter: 2019Q2

REPORT INFORMATION
  Report Type: Report from Study
  Country: None (occurrence: US)
  Receive Date: 20190626
  Receipt Date: 20190628
  Transmission Date: 20190711
  Serious: Yes (Other)
  Sender: FDA-Public Use
  Company Number: US-ABBVIE-19K-163-2830010-00

PATIENT
  Sex: Male
  Weight: 79.45 kg

DRUGS (1)
  1. MAVYRET [Suspect]
     Active Substance: GLECAPREVIR\PIBRENTASVIR
     Indication: CHRONIC HEPATITIS C
     Dosage: 100/40 MG 3 TABLETS BY MOUTH DAILY WITH BREAKFAST,  8 WEEKS
     Route: 048
     Dates: start: 20190513, end: 20190620

REACTIONS (1)
  - Hepatic cancer [Not Recovered/Not Resolved]

NARRATIVE: CASE EVENT DATE: 2019
